FAERS Safety Report 15917780 (Version 2)
Quarter: 2019Q2

REPORT INFORMATION
  Report Type: Spontaneous
  Country: US (occurrence: US)
  Receive Date: 20190205
  Receipt Date: 20190621
  Transmission Date: 20190711
  Serious: No
  Sender: FDA-Public Use
  Company Number: US-PFIZER INC-2016372693

PATIENT
  Age: 85 Year
  Sex: Female

DRUGS (1)
  1. LYRICA [Suspect]
     Active Substance: PREGABALIN
     Indication: NEUROPATHY PERIPHERAL
     Dosage: 200 MG, 2X/DAY (1 CAPSULE BID)
     Route: 048

REACTIONS (4)
  - Memory impairment [Unknown]
  - Pain in extremity [Unknown]
  - Intentional product use issue [Unknown]
  - Dizziness [Unknown]
